FAERS Safety Report 24185549 (Version 4)
Quarter: 2025Q1

REPORT INFORMATION
  Report Type: Spontaneous
  Country: US (occurrence: US)
  Receive Date: 20240807
  Receipt Date: 20250210
  Transmission Date: 20250409
  Serious: No
  Sender: SANOFI AVENTIS
  Company Number: US-SA-SAC20240802000296

PATIENT
  Age: 66 Year
  Sex: Female
  Weight: 129.55 kg

DRUGS (10)
  1. DUPIXENT [Suspect]
     Active Substance: DUPILUMAB
     Indication: Dermatitis atopic
     Dosage: 300 MG, QOW
     Route: 058
  2. IRON [Concomitant]
     Active Substance: IRON
  3. VITAMINS NOS [Concomitant]
     Active Substance: VITAMINS
  4. CYANOCOBALAMIN [Concomitant]
     Active Substance: CYANOCOBALAMIN
  5. VITAMIN D3 [Concomitant]
     Active Substance: CHOLECALCIFEROL
  6. LEVOTHYROXINE SODIUM [Concomitant]
     Active Substance: LEVOTHYROXINE SODIUM
  7. HYDROXYZINE HYDROCHLORIDE [Concomitant]
     Active Substance: HYDROXYZINE HYDROCHLORIDE
  8. IRON CHEWS [Concomitant]
     Active Substance: IRON PENTACARBONYL
  9. EBGLYSS [Suspect]
     Active Substance: LEBRIKIZUMAB-LBKZ
     Indication: Dermatitis atopic
  10. EBGLYSS [Suspect]
     Active Substance: LEBRIKIZUMAB-LBKZ

REACTIONS (7)
  - Injection site pain [Unknown]
  - SARS-CoV-2 test positive [Not Recovered/Not Resolved]
  - Eye swelling [Unknown]
  - Periorbital pain [Unknown]
  - Skin hyperpigmentation [Unknown]
  - Dermatitis atopic [Recovering/Resolving]
  - Drug ineffective [Unknown]

NARRATIVE: CASE EVENT DATE: 20240727
